FAERS Safety Report 24410501 (Version 3)
Quarter: 2024Q4

REPORT INFORMATION
  Report Type: Spontaneous
  Country: US (occurrence: US)
  Receive Date: 20241008
  Receipt Date: 20241108
  Transmission Date: 20250115
  Serious: No
  Sender: Haleon PLC
  Company Number: US-HALEON-2200607

PATIENT

DRUGS (2)
  1. ABREVA RAPID PAIN RELIEF [Suspect]
     Active Substance: GLYCERIN\LIDOCAINE HYDROCHLORIDE
     Indication: Product used for unknown indication
  2. ABREVA [Suspect]
     Active Substance: DOCOSANOL
     Indication: Product used for unknown indication

REACTIONS (2)
  - Drug ineffective [Unknown]
  - Product complaint [Unknown]
